FAERS Safety Report 20948278 (Version 1)
Quarter: 2022Q2

REPORT INFORMATION
  Report Type: Spontaneous
  Country: US (occurrence: US)
  Receive Date: 20220611
  Receipt Date: 20220611
  Transmission Date: 20220721
  Serious: Yes (Other)
  Sender: FDA-Public Use
  Company Number: US-SA-SAC20220608001589

PATIENT
  Age: 18 Year
  Sex: Female

DRUGS (1)
  1. ZANTAC [Suspect]
     Active Substance: RANITIDINE HYDROCHLORIDE
     Indication: Gastrooesophageal reflux disease
     Dosage: UNK, QD
     Route: 065
     Dates: start: 199801, end: 201612

REACTIONS (4)
  - Colorectal cancer [Unknown]
  - Renal cancer [Unknown]
  - Cervix carcinoma [Unknown]
  - Vulval cancer [Unknown]

NARRATIVE: CASE EVENT DATE: 19990101
